FAERS Safety Report 10384050 (Version 1)
Quarter: 2014Q3

REPORT INFORMATION
  Report Type: Spontaneous
  Country: US (occurrence: None)
  Receive Date: 20140813
  Receipt Date: 20140813
  Transmission Date: 20150326
  Serious: No
  Sender: FDA-Public Use
  Company Number: None

PATIENT
  Age: 55 Year
  Sex: Male

DRUGS (1)
  1. AFINITOR [Suspect]
     Active Substance: EVEROLIMUS
     Indication: RENAL CANCER
     Dosage: 10MG (2 TABS) QD PO
     Route: 048
     Dates: end: 20140812

REACTIONS (2)
  - Hospice care [None]
  - Drug ineffective [None]

NARRATIVE: CASE EVENT DATE: 20140812
